FAERS Safety Report 10287073 (Version 1)
Quarter: 2014Q3

REPORT INFORMATION
  Report Type: Spontaneous
  Country: None (occurrence: None)
  Receive Date: 20140707
  Receipt Date: 20140707
  Transmission Date: 20150326
  Serious: Yes (Life-Threatening, Hospitalization)
  Sender: FDA-Public Use
  Company Number: 2014/046

PATIENT
  Age: 17 Year
  Sex: Female
  Weight: 55 kg

DRUGS (3)
  1. AMLODIPINE [Suspect]
     Active Substance: AMLODIPINE BESYLATE
  2. BISOPROLOL [Suspect]
     Active Substance: BISOPROLOL
  3. CAPTOPRIL. [Concomitant]
     Active Substance: CAPTOPRIL

REACTIONS (20)
  - Heart rate decreased [None]
  - Cyanosis [None]
  - Continuous haemodiafiltration [None]
  - Suicide attempt [None]
  - Asthenia [None]
  - Metabolic acidosis [None]
  - Respiratory failure [None]
  - Hyperglycaemia [None]
  - Electrocardiogram ST segment elevation [None]
  - Hypothermia [None]
  - Circulatory collapse [None]
  - Abdominal pain [None]
  - Dizziness [None]
  - Chest X-ray abnormal [None]
  - Blood pressure decreased [None]
  - Peripheral coldness [None]
  - Ejection fraction decreased [None]
  - Pulmonary oedema [None]
  - Anuria [None]
  - Multi-organ failure [None]
